FAERS Safety Report 17795087 (Version 5)
Quarter: 2020Q2

REPORT INFORMATION
  Report Type: Report from Study
  Country: US (occurrence: US)
  Receive Date: 20200515
  Receipt Date: 20200616
  Transmission Date: 20200714
  Serious: No
  Sender: FDA-Public Use
  Company Number: NVSC2020US133011

PATIENT
  Sex: Male

DRUGS (14)
  1. LOSARTAN. [Interacting]
     Active Substance: LOSARTAN
     Dosage: UNK
     Route: 065
  2. IBUPROFEN. [Concomitant]
     Active Substance: IBUPROFEN
     Indication: PRODUCT USED FOR UNKNOWN INDICATION
     Dosage: UNK
     Route: 065
  3. TIMOLOL. [Concomitant]
     Active Substance: TIMOLOL
     Indication: PRODUCT USED FOR UNKNOWN INDICATION
     Dosage: UNK
     Route: 065
  4. CARVEDILOL. [Concomitant]
     Active Substance: CARVEDILOL
     Indication: PRODUCT USED FOR UNKNOWN INDICATION
     Dosage: UNK
     Route: 065
  5. LOVASTATIN. [Concomitant]
     Active Substance: LOVASTATIN
     Indication: PRODUCT USED FOR UNKNOWN INDICATION
     Dosage: UNK
     Route: 065
  6. OMEPRAZOLE. [Concomitant]
     Active Substance: OMEPRAZOLE
     Indication: PRODUCT USED FOR UNKNOWN INDICATION
     Dosage: UNK
     Route: 065
  7. ENTRESTO [Suspect]
     Active Substance: SACUBITRIL\VALSARTAN
     Indication: PRODUCT USED FOR UNKNOWN INDICATION
     Dosage: UNK UNK, QD
     Route: 065
     Dates: start: 202002
  8. LOSARTAN. [Interacting]
     Active Substance: LOSARTAN
     Indication: PRODUCT USED FOR UNKNOWN INDICATION
     Dosage: UNK
     Route: 065
  9. AMIODARONE [Concomitant]
     Active Substance: AMIODARONE
     Indication: PRODUCT USED FOR UNKNOWN INDICATION
     Dosage: UNK
     Route: 065
  10. GLUCOSAMINE [Concomitant]
     Active Substance: GLUCOSAMINE
     Indication: PRODUCT USED FOR UNKNOWN INDICATION
     Dosage: UNK
     Route: 065
  11. TORASEMIDE [Suspect]
     Active Substance: TORSEMIDE
     Indication: PRODUCT USED FOR UNKNOWN INDICATION
     Dosage: UNK
     Route: 065
  12. ENTRESTO [Suspect]
     Active Substance: SACUBITRIL\VALSARTAN
     Dosage: 50 MG, BID (24/26 MG)
     Route: 065
     Dates: start: 20200316
  13. ASPARIN [Concomitant]
     Active Substance: ASPIRIN DL-LYSINE
     Indication: PRODUCT USED FOR UNKNOWN INDICATION
     Dosage: 81 MG, UNKNOWN
     Route: 065
  14. ASPARIN [Concomitant]
     Active Substance: ASPIRIN DL-LYSINE
     Route: 065

REACTIONS (17)
  - Weight fluctuation [Unknown]
  - Anxiety [Unknown]
  - Peripheral swelling [Unknown]
  - Dyspnoea exertional [Not Recovered/Not Resolved]
  - Potentiating drug interaction [Unknown]
  - Sleep disorder [Unknown]
  - Pollakiuria [Not Recovered/Not Resolved]
  - Oropharyngeal discomfort [Unknown]
  - Aphasia [Unknown]
  - Hypoacusis [Unknown]
  - Drug ineffective [Not Recovered/Not Resolved]
  - Off label use [Recovered/Resolved]
  - Dizziness [Not Recovered/Not Resolved]
  - Micturition urgency [Not Recovered/Not Resolved]
  - Confusional state [Unknown]
  - Memory impairment [Unknown]
  - Cough [Unknown]

NARRATIVE: CASE EVENT DATE: 2019
